FAERS Safety Report 5866894-8 (Version None)
Quarter: 2008Q3

REPORT INFORMATION
  Report Type: 
  Country: None (occurrence: None)
  Receive Date: 20080902
  Receipt Date: 20080801
  Transmission Date: 20090109
  Serious: No
  Sender: FDA-Public Use
  Company Number: US-BAYER-200811262BCC

PATIENT
  Age: 24 Year
  Sex: Male
  Weight: 68 kg

DRUGS (2)
  1. ALEVE [Suspect]
     Indication: SELF INJURIOUS BEHAVIOUR
     Dosage: UNIT DOSE: 220 MG
     Dates: start: 20080401
  2. KROGER BRAND MIGRAINE MEDICATION [Suspect]
     Indication: SELF INJURIOUS BEHAVIOUR
     Dates: start: 20080401

REACTIONS (1)
  - NO ADVERSE EVENT [None]
